FAERS Safety Report 15807251 (Version 2)
Quarter: 2019Q1

REPORT INFORMATION
  Report Type: Spontaneous
  Country: US (occurrence: US)
  Receive Date: 20190110
  Receipt Date: 20190114
  Transmission Date: 20190417
  Serious: Yes (Death)
  Sender: FDA-Public Use
  Company Number: US-PFIZER INC-2019008405

PATIENT
  Age: 30 Year
  Sex: Female

DRUGS (9)
  1. ZIPRASIDONE HCL [Suspect]
     Active Substance: ZIPRASIDONE HYDROCHLORIDE
     Dosage: UNK (INGESTION)
     Route: 048
  2. CLONAZEPAM. [Suspect]
     Active Substance: CLONAZEPAM
     Dosage: UNK (INGESTION)
     Route: 048
  3. TRAZODONE [Suspect]
     Active Substance: TRAZODONE HYDROCHLORIDE
     Dosage: UNK (INGESTION)
     Route: 048
  4. LAMOTRIGINE. [Suspect]
     Active Substance: LAMOTRIGINE
     Dosage: UNK (INGESTION)
     Route: 048
  5. OMEPRAZOLE. [Suspect]
     Active Substance: OMEPRAZOLE
     Dosage: UNK (INGESTION)
     Route: 048
  6. LORAZEPAM. [Suspect]
     Active Substance: LORAZEPAM
     Dosage: UNK (INGESTION)
     Route: 048
  7. ACETAMINOPHEN/OXYCODONE [Suspect]
     Active Substance: ACETAMINOPHEN\OXYCODONE HYDROCHLORIDE
     Dosage: UNK (INGESTION)
     Route: 048
  8. BUSPIRONE [Suspect]
     Active Substance: BUSPIRONE HYDROCHLORIDE
     Dosage: UNK (INGESTION)
     Route: 048
  9. OLANZAPINE. [Suspect]
     Active Substance: OLANZAPINE
     Dosage: UNK (INGESTION)
     Route: 048

REACTIONS (3)
  - Cardiac arrest [Fatal]
  - Respiratory arrest [Fatal]
  - Completed suicide [Fatal]

NARRATIVE: CASE EVENT DATE: 2017
